FAERS Safety Report 23291356 (Version 1)
Quarter: 2023Q4

REPORT INFORMATION
  Report Type: Spontaneous
  Country: CN (occurrence: CN)
  Receive Date: 20231213
  Receipt Date: 20231213
  Transmission Date: 20240110
  Serious: Yes (Other)
  Sender: FDA-Public Use
  Company Number: CN-MLMSERVICE-20231129-4695638-1

PATIENT
  Age: 20 Year
  Sex: Female

DRUGS (4)
  1. DEXAMETHASONE [Suspect]
     Active Substance: DEXAMETHASONE
     Indication: B precursor type acute leukaemia
     Dosage: FOURTH ROUND OF CHEMOTHERAPY
     Route: 065
  2. CYTARABINE [Suspect]
     Active Substance: CYTARABINE
     Indication: B precursor type acute leukaemia
     Dosage: FOURTH ROUND OF CHEMOTHERAPY
     Route: 065
  3. METHOTREXATE [Suspect]
     Active Substance: METHOTREXATE
     Indication: B precursor type acute leukaemia
     Dosage: FOURTH ROUND OF CHEMOTHERAPY
     Route: 065
  4. NILOTINIB [Concomitant]
     Active Substance: NILOTINIB
     Indication: B precursor type acute leukaemia

REACTIONS (4)
  - Hepatotoxicity [Unknown]
  - Gastrointestinal inflammation [Unknown]
  - Nephropathy toxic [Unknown]
  - Stomatitis [Unknown]
